FAERS Safety Report 11273346 (Version 1)
Quarter: 2015Q3

REPORT INFORMATION
  Report Type: Spontaneous
  Country: US (occurrence: None)
  Receive Date: 20150714
  Receipt Date: 20150714
  Transmission Date: 20151125
  Serious: Yes (Hospitalization)
  Sender: FDA-Public Use
  Company Number: None

PATIENT
  Age: 58 Year
  Sex: Male

DRUGS (1)
  1. HARVONI [Suspect]
     Active Substance: LEDIPASVIR\SOFOSBUVIR
     Indication: HEPATITIS C
     Dosage: 1 TAB DAILY PO
     Route: 048
     Dates: start: 20150622

REACTIONS (6)
  - Malaise [None]
  - Internal haemorrhage [None]
  - Oesophageal disorder [None]
  - Faeces discoloured [None]
  - Dizziness [None]
  - Dyspepsia [None]

NARRATIVE: CASE EVENT DATE: 20150630
